FAERS Safety Report 7610054-7 (Version None)
Quarter: 2011Q3

REPORT INFORMATION
  Report Type: 
  Country: None (occurrence: None)
  Receive Date: 20110715
  Receipt Date: 20110712
  Transmission Date: 20111222
  Serious: Yes (Hospitalization)
  Sender: FDA-Public Use
  Company Number: US-BRISTOL-MYERS SQUIBB COMPANY-15896111

PATIENT
  Sex: Female

DRUGS (1)
  1. YERVOY [Suspect]
     Dosage: 4 DOSES GIVEN. LAST INFUSION 29JUN2011.

REACTIONS (1)
  - PNEUMONIA [None]
